FAERS Safety Report 5315271-7 (Version None)
Quarter: 2007Q2

REPORT INFORMATION
  Report Type: 
  Country: None (occurrence: None)
  Receive Date: 20070427
  Receipt Date: 20070423
  Transmission Date: 20071010
  Serious: Yes (Hospitalization)
  Sender: FDA-Public Use
  Company Number: S07-USA-01719-01

PATIENT
  Age: 59 Year
  Sex: Female

DRUGS (7)
  1. LEXAPRO [Suspect]
     Indication: DEPRESSION
     Dosage: 20 MG QD PO
     Route: 048
     Dates: start: 20040501
  2. LEXAPRO [Suspect]
     Indication: PANIC DISORDER
     Dosage: 20 MG QD PO
     Route: 048
     Dates: start: 20040501
  3. LEXAPRO [Suspect]
     Indication: DEPRESSION
     Dosage: 10 MG QD PO
     Route: 048
     Dates: start: 20040301, end: 20040501
  4. LEXAPRO [Suspect]
     Indication: PANIC DISORDER
     Dosage: 10 MG QD PO
     Route: 048
     Dates: start: 20040301, end: 20040501
  5. PROTONIX [Concomitant]
  6. SYNTHROID (LEVTHYROXINE SDIUM) [Concomitant]
  7. BENICAR [Concomitant]

REACTIONS (2)
  - POST PROCEDURAL COMPLICATION [None]
  - SPLENIC HAEMORRHAGE [None]
